FAERS Safety Report 4872965-5 (Version None)
Quarter: 2006Q1

REPORT INFORMATION
  Report Type: 
  Country: None (occurrence: None)
  Receive Date: 20060105
  Receipt Date: 20050513
  Transmission Date: 20060701
  Serious: No
  Sender: FDA-Public Use
  Company Number: US-BRISTOL-MYERS SQUIBB COMPANY-12969044

PATIENT
  Age: 47 Year
  Sex: Male

DRUGS (9)
  1. SERZONE [Suspect]
     Indication: DEPRESSION
     Dosage: DOSAGE: 50-100MG TWICE DIALY
     Route: 048
     Dates: start: 20000911
  2. BUTALBITAL + ACETAMINOPHEN [Concomitant]
     Indication: MIGRAINE
  3. BECLOMETHASONE DIPROPIONATE [Concomitant]
  4. GLYBURIDE [Concomitant]
     Indication: BLOOD GLUCOSE INCREASED
  5. ISOSORBIDE DINITRATE [Concomitant]
     Indication: ANGINA PECTORIS
  6. LORATADINE [Concomitant]
  7. METOPROLOL TARTRATE [Concomitant]
     Indication: BLOOD PRESSURE
  8. NITROGLYCERIN [Concomitant]
  9. RANITIDINE [Concomitant]

REACTIONS (1)
  - HEPATIC ENZYME INCREASED [None]
